FAERS Safety Report 9940512 (Version 2)
Quarter: 2014Q1

REPORT INFORMATION
  Report Type: Spontaneous
  Country: FR (occurrence: FR)
  Receive Date: 20140303
  Receipt Date: 20140325
  Transmission Date: 20141002
  Serious: Yes (Hospitalization)
  Sender: FDA-Public Use
  Company Number: FR-PFIZER INC-2014054816

PATIENT
  Age: 89 Year
  Sex: Female

DRUGS (12)
  1. SOLU-MEDROL [Suspect]
     Indication: BRONCHIAL DISORDER
     Dosage: 60 MG, UNK
     Route: 042
     Dates: start: 20120216, end: 20120221
  2. ROCEPHINE [Suspect]
     Indication: LUNG INFECTION
     Dosage: 1 G, UNK
     Route: 042
     Dates: start: 20120216, end: 20120302
  3. BURINEX [Suspect]
     Dosage: 4 DF, 1X/DAY
     Route: 048
     Dates: end: 20120221
  4. CORDARONE [Concomitant]
     Dosage: 1 DF, DAILY
  5. KALEORID [Concomitant]
     Dosage: 1 DF, 1X/DAY
  6. TEMERIT [Concomitant]
     Dosage: 5 MG, 1X/DAY
  7. SPECIAFOLDINE [Concomitant]
     Dosage: 5 MG, UNK
  8. ZOPICLONE [Concomitant]
     Dosage: 1 DF, 1X/DAY
  9. TRANSIPEG [Concomitant]
     Dosage: MACROGOL 3350, UNK
  10. GLUCOR [Concomitant]
     Dosage: 100, UNK
  11. LANTUS [Concomitant]
     Dosage: UNK
  12. PREVISCAN [Concomitant]
     Dosage: 0.25 DF, DAILY

REACTIONS (4)
  - Renal failure acute [Recovered/Resolved]
  - Hypernatraemia [Recovered/Resolved]
  - Hyperglycaemia [Recovered/Resolved]
  - Dehydration [Recovered/Resolved]
